FAERS Safety Report 9436951 (Version 2)
Quarter: 2013Q3

REPORT INFORMATION
  Report Type: Spontaneous
  Country: US (occurrence: US)
  Receive Date: 20130802
  Receipt Date: 20130911
  Transmission Date: 20140515
  Serious: Yes (Death, Other)
  Sender: FDA-Public Use
  Company Number: US-BRISTOL-MYERS SQUIBB COMPANY-19144005

PATIENT
  Age: 63 Year
  Sex: Female
  Weight: 96 kg

DRUGS (12)
  1. YERVOY [Suspect]
     Indication: METASTASES TO LUNG
     Dosage: 300MG
     Route: 042
     Dates: start: 20121116
  2. YERVOY [Suspect]
     Indication: MALIGNANT MELANOMA
     Dosage: 300MG
     Route: 042
     Dates: start: 20121116
  3. AMLODIPINE BESYLATE [Concomitant]
     Dosage: TABLET
     Route: 048
  4. EMLA [Concomitant]
     Dosage: CREAM?APPLY TO INFUSION BEFORE 30 MIN
     Route: 061
  5. HYDROCHLOROTHIAZIDE [Concomitant]
     Dosage: TABLETS
     Route: 048
  6. HYDROCODONE + ACETAMINOPHEN [Concomitant]
     Indication: PAIN
     Dosage: 1 DF : 5MG-500MG?TAKE 2 ?TABLETS
     Route: 048
  7. LIPITOR [Concomitant]
     Dosage: TABLETS
     Route: 048
  8. NAPROXEN [Concomitant]
     Route: 048
  9. ONDANSETRON HCL [Concomitant]
     Indication: NAUSEA
     Route: 048
  10. PREMARIN [Concomitant]
     Dosage: TABLET(S) TAKE 1 PO QHS AS DIRECTED
     Route: 048
  11. PROCHLORPERAZINE MALEATE [Concomitant]
     Indication: NAUSEA
     Dosage: TABLETS
     Route: 048
  12. SYNTHROID [Concomitant]
     Dosage: TABLETS
     Route: 048

REACTIONS (2)
  - Malignant neoplasm progression [Fatal]
  - Deafness [Unknown]
